FAERS Safety Report 25929642 (Version 1)
Quarter: 2025Q4

REPORT INFORMATION
  Report Type: Spontaneous
  Country: EU (occurrence: EU)
  Receive Date: 20251016
  Receipt Date: 20251016
  Transmission Date: 20260118
  Serious: Yes (Hospitalization)
  Sender: TEVA
  Company Number: None

PATIENT
  Age: 53 Year
  Sex: Female
  Weight: 48 kg

DRUGS (2)
  1. METHOTREXATE [Suspect]
     Active Substance: METHOTREXATE
     Indication: Rheumatoid arthritis
     Dosage: 15 MG/WEEK
     Route: 048
     Dates: start: 2011, end: 20250912
  2. ORENCIA [Suspect]
     Active Substance: ABATACEPT
     Indication: Rheumatoid arthritis
     Dosage: 125 MG/WEEK
     Route: 058
     Dates: start: 20190608, end: 20250912

REACTIONS (1)
  - Neurocryptococcosis [Recovering/Resolving]

NARRATIVE: CASE EVENT DATE: 20250801
